FAERS Safety Report 18832611 (Version 1)
Quarter: 2021Q1

REPORT INFORMATION
  Report Type: Spontaneous
  Country: FR (occurrence: FR)
  Receive Date: 20210201
  Receipt Date: 20210201
  Transmission Date: 20210419
  Serious: Yes (Other)
  Sender: FDA-Public Use
  Company Number: FR-BAXTER-2021BAX001658

PATIENT
  Age: 81 Year
  Sex: Male
  Weight: 84 kg

DRUGS (10)
  1. ENDOXAN 1000 MG, POUDRE POUR SOLUTIONINJECTABLE [Suspect]
     Active Substance: CYCLOPHOSPHAMIDE
     Indication: PLASMA CELL MYELOMA
     Route: 042
     Dates: start: 20201022, end: 20201022
  2. REVLIMID [Suspect]
     Active Substance: LENALIDOMIDE
     Indication: PLASMA CELL MYELOMA
     Dosage: 21J/28
     Route: 048
     Dates: start: 20201113, end: 20201204
  3. VELCADE [Suspect]
     Active Substance: BORTEZOMIB
     Indication: PLASMA CELL MYELOMA
     Dosage: J1 ? J4 ? J8 ? J11
     Route: 042
     Dates: start: 20201113, end: 20201123
  4. AUGMENTIN [Suspect]
     Active Substance: AMOXICILLIN\CLAVULANATE POTASSIUM
     Indication: PROPHYLAXIS
     Route: 048
     Dates: start: 20201116, end: 20201124
  5. DIGOXINE NATIVELLE [Suspect]
     Active Substance: DIGOXIN
     Indication: ATRIAL FIBRILLATION
     Dosage: DOSAGE FORM: TABLET
     Route: 042
     Dates: start: 20201113, end: 20201118
  6. DEXAMETHASONE. [Suspect]
     Active Substance: DEXAMETHASONE
     Indication: PLASMA CELL MYELOMA
     Dosage: J1 ? J4 ? J8 ? J11
     Route: 048
     Dates: start: 20201113, end: 20201123
  7. RAMIPRIL MYLAN [Suspect]
     Active Substance: RAMIPRIL
     Indication: HYPERTENSION
     Dosage: DOSAGE FORM: TABLET
     Route: 048
     Dates: start: 20201117, end: 20201205
  8. FUROSEMIDE ARROW [Suspect]
     Active Substance: FUROSEMIDE
     Indication: ACUTE PULMONARY OEDEMA
     Dosage: DOSAGE FORM: SCORED TABLET
     Route: 048
     Dates: start: 20201113, end: 20201205
  9. HEMIGOXINE NATIVELLE [Suspect]
     Active Substance: DIGOXIN
     Indication: ATRIAL FIBRILLATION
     Dosage: DOSAGE FORM: TABLET
     Route: 048
     Dates: start: 20201121, end: 20201205
  10. ISOSORBIDE MEDISOL [Suspect]
     Active Substance: ISOSORBIDE DINITRATE
     Indication: ACUTE PULMONARY OEDEMA
     Route: 042
     Dates: start: 20201115, end: 20201123

REACTIONS (3)
  - Asthenia [Recovered/Resolved]
  - Somnolence [Recovered/Resolved]
  - Condition aggravated [Recovered/Resolved]

NARRATIVE: CASE EVENT DATE: 202011
